FAERS Safety Report 9524465 (Version 1)
Quarter: 2013Q3

REPORT INFORMATION
  Report Type: Spontaneous
  Country: US (occurrence: US)
  Receive Date: 20130916
  Receipt Date: 20130916
  Transmission Date: 20140515
  Serious: No
  Sender: FDA-Public Use
  Company Number: US-PFIZER INC-2013261769

PATIENT
  Age: 80 Year
  Sex: Female

DRUGS (2)
  1. NEOSPORIN [Suspect]
     Dosage: UNK
  2. SODIUM PENTOTHAL [Suspect]
     Dosage: UNK

REACTIONS (1)
  - Drug hypersensitivity [Unknown]
